FAERS Safety Report 6181509 (Version 2)
Quarter: 2014Q4

REPORT INFORMATION
  Report Type: Spontaneous
  Country: US (occurrence: US)
  Receive Date: 20061120
  Receipt Date: 20141203
  Transmission Date: 20150529
  Serious: Yes (Death)
  Sender: FDA-Public Use
  Company Number: GXKR2006US07292

PATIENT
  Age: 2 Year
  Sex: Female

DRUGS (1)
  1. CLONIDINE. [Suspect]
     Active Substance: CLONIDINE
     Indication: PRODUCT USED FOR UNKNOWN INDICATION
     Route: 048

REACTIONS (6)
  - Acidosis [Fatal]
  - Respiratory depression [Fatal]
  - Labile blood pressure [Fatal]
  - Pulmonary oedema [Fatal]
  - Urine output decreased [Fatal]
  - Accidental overdose [Fatal]
